FAERS Safety Report 24946161 (Version 1)
Quarter: 2025Q1

REPORT INFORMATION
  Report Type: Spontaneous
  Country: CN (occurrence: CN)
  Receive Date: 20250210
  Receipt Date: 20250210
  Transmission Date: 20250409
  Serious: No
  Sender: ALKEM
  Company Number: None

PATIENT
  Age: 5 Year
  Sex: Male

DRUGS (3)
  1. LINEZOLID [Suspect]
     Active Substance: LINEZOLID
     Indication: Meningitis bacterial
     Dosage: 220 MILLIGRAMS, EVERY 8 HOURS (10 MILLIGRAMS PER KILOGRAM)
     Route: 042
  2. CEFTRIAXONE [Concomitant]
     Active Substance: CEFTRIAXONE
     Indication: Meningitis bacterial
     Dosage: 1 MILLIGRAM (EVERY 12 HOURS) 50 MILLIGRAM PER KILOGRAM
     Route: 042
  3. DEXAMETHASONE [Concomitant]
     Active Substance: DEXAMETHASONE
     Indication: Antiinflammatory therapy
     Dosage: 5 MILLIGRAMS (EVERY 12 HOURS)
     Route: 065

REACTIONS (1)
  - Tooth discolouration [Recovered/Resolved]
